FAERS Safety Report 4780308-0 (Version None)
Quarter: 2005Q3

REPORT INFORMATION
  Report Type: 
  Country: None (occurrence: None)
  Receive Date: 20050926
  Receipt Date: 20050909
  Transmission Date: 20060218
  Serious: Yes (Death, Hospitalization)
  Sender: FDA-Public Use
  Company Number: 217646

PATIENT
  Age: 59 Year
  Sex: Female

DRUGS (1)
  1. BEVACIZUMAB(BEVACIZUMAB) PWDR + SOLVENT,INFUSION SOLN, 100MG [Suspect]
     Indication: OVARIAN CANCER
     Dosage: 825 MG, Q3W, INTRAVENOUS
     Route: 042
     Dates: start: 20050517

REACTIONS (15)
  - BLOOD MAGNESIUM ABNORMAL [None]
  - BLOOD PHOSPHORUS DECREASED [None]
  - CEREBRAL INFARCTION [None]
  - CHEST X-RAY ABNORMAL [None]
  - CONVULSION [None]
  - HAEMATOCRIT DECREASED [None]
  - HAEMOGLOBIN DECREASED [None]
  - HEART RATE INCREASED [None]
  - HYDRONEPHROSIS [None]
  - HYPERTENSION [None]
  - HYPERTENSIVE ENCEPHALOPATHY [None]
  - INTESTINAL OBSTRUCTION [None]
  - PELVIC MASS [None]
  - PROCEDURAL COMPLICATION [None]
  - VOMITING [None]
